FAERS Safety Report 20008740 (Version 6)
Quarter: 2023Q1

REPORT INFORMATION
  Report Type: Report from Study
  Country: BR (occurrence: None)
  Receive Date: 20211029
  Receipt Date: 20230306
  Transmission Date: 20230417
  Serious: Yes (Death, Life-Threatening, Hospitalization)
  Sender: FDA-Public Use
  Company Number: BR-ROCHE-2906794

PATIENT
  Age: 29 Year
  Sex: Male
  Weight: 86 kg

DRUGS (9)
  1. ADO-TRASTUZUMAB EMTANSINE [Suspect]
     Active Substance: ADO-TRASTUZUMAB EMTANSINE
     Indication: Hepatobiliary cancer
     Dosage: DOSE LAST STUDY DRUG ADMIN PRIOR AE IS 309.6 MG: 01/SEP/2021?DOSE LAST STUDY DRUG ADMIN PRIOR SAE IS
     Route: 042
  2. DEXMEDETOMIDINE [Concomitant]
     Active Substance: DEXMEDETOMIDINE
     Indication: Sedation
     Route: 065
     Dates: start: 20210906, end: 20211005
  3. DEXMEDETOMIDINE [Concomitant]
     Active Substance: DEXMEDETOMIDINE
     Indication: Haemorrhagic diathesis
  4. REMIFENTANIL [Concomitant]
     Active Substance: REMIFENTANIL
     Indication: Sedation
     Route: 065
     Dates: start: 20210906, end: 20211005
  5. REMIFENTANIL [Concomitant]
     Active Substance: REMIFENTANIL
     Indication: Haemorrhagic diathesis
  6. CISATRACURIUM [Concomitant]
     Active Substance: CISATRACURIUM
     Indication: Sedation
     Route: 065
     Dates: start: 20210915, end: 20211005
  7. CISATRACURIUM [Concomitant]
     Active Substance: CISATRACURIUM
     Indication: Haemorrhagic diathesis
  8. DIPHENHYDRAMINE [Concomitant]
     Active Substance: DIPHENHYDRAMINE
     Indication: Prophylaxis
     Dosage: HYDRATION AFTER INFUSION
     Route: 042
     Dates: start: 20210901, end: 20210901
  9. DIPYRONE [Concomitant]
     Active Substance: DIPYRONE
     Indication: Cancer pain
     Route: 048
     Dates: start: 201901

REACTIONS (4)
  - Drug-induced liver injury [Fatal]
  - Haemorrhagic diathesis [Not Recovered/Not Resolved]
  - Septic shock [Not Recovered/Not Resolved]
  - Acute kidney injury [Not Recovered/Not Resolved]

NARRATIVE: CASE EVENT DATE: 20210904
